FAERS Safety Report 6692343-6 (Version None)
Quarter: 2010Q2

REPORT INFORMATION
  Report Type: 
  Country: None (occurrence: None)
  Receive Date: 20100419
  Receipt Date: 20100408
  Transmission Date: 20101027
  Serious: No
  Sender: FDA-Public Use
  Company Number: 009404

PATIENT

DRUGS (1)
  1. PLETAL [Suspect]
     Route: 048

REACTIONS (2)
  - CARDIAC FAILURE [None]
  - OFF LABEL USE [None]
